FAERS Safety Report 8259617-9 (Version None)
Quarter: 2012Q2

REPORT INFORMATION
  Report Type: 
  Country: None (occurrence: None)
  Receive Date: 20120404
  Receipt Date: 20120330
  Transmission Date: 20120825
  Serious: Yes (Death, Other)
  Sender: FDA-Public Use
  Company Number: PHHY2010JP66872

PATIENT
  Sex: Male
  Weight: 56 kg

DRUGS (8)
  1. NEXAVAR [Concomitant]
     Indication: METASTATIC RENAL CELL CARCINOMA
     Dosage: 800 MG, UNK
     Route: 048
     Dates: start: 20090116, end: 20100130
  2. AFINITOR [Suspect]
     Indication: METASTATIC RENAL CELL CARCINOMA
     Dosage: 10 MG, UNK
     Route: 048
     Dates: start: 20100428, end: 20100517
  3. LEVOTHYROXINE SODIUM [Concomitant]
     Indication: METASTATIC RENAL CELL CARCINOMA
     Dosage: 50 MG, UNK
     Route: 048
     Dates: start: 20100303, end: 20100613
  4. SUNITINIB MALATE [Concomitant]
     Indication: METASTATIC RENAL CELL CARCINOMA
     Dosage: 50 MG, UNK
     Route: 048
     Dates: start: 20100225, end: 20100427
  5. CLONAZEPAM [Concomitant]
     Indication: METASTATIC RENAL CELL CARCINOMA
     Dosage: 0.5 MG, UNK
     Route: 048
     Dates: start: 20100401, end: 20100613
  6. DOXAZOSIN MESYLATE [Concomitant]
     Indication: METASTATIC RENAL CELL CARCINOMA
     Dosage: 3 MG, UNK
     Route: 048
     Dates: start: 20100401, end: 20100613
  7. MOBIC [Concomitant]
     Indication: METASTATIC RENAL CELL CARCINOMA
     Dosage: 10 MG, UNK
     Route: 048
     Dates: start: 20090201, end: 20100613
  8. CANDESARTAN CILEXETIL [Concomitant]
     Indication: METASTATIC RENAL CELL CARCINOMA
     Dosage: 8 MG, UNK
     Route: 048
     Dates: start: 20100201, end: 20100517

REACTIONS (3)
  - MALIGNANT PLEURAL EFFUSION [None]
  - HAEMOGLOBIN DECREASED [None]
  - LIVER DISORDER [None]
